FAERS Safety Report 4274525-6 (Version None)
Quarter: 2004Q1

REPORT INFORMATION
  Report Type: 
  Country: None (occurrence: None)
  Receive Date: 20040120
  Receipt Date: 20031031
  Transmission Date: 20041129
  Serious: Yes (Hospitalization)
  Sender: FDA-Public Use
  Company Number: CA-ROCHE-350368

PATIENT
  Age: 80 Year
  Sex: Male
  Weight: 114.4 kg

DRUGS (5)
  1. CAPECITABINE [Suspect]
     Dosage: ADMINISTERED ON DAYS 1 TO 14 OF A 3 WEEK CYCLE.
     Route: 048
     Dates: start: 20030926, end: 20031028
  2. CAPECITABINE [Suspect]
     Dosage: INTERMITTENT THERAPY OF 14 DAYS TREATMENT AND SEVEN DAYS REST.
     Route: 048
     Dates: start: 20031202
  3. ATENOLOL [Concomitant]
     Dates: start: 20030523
  4. IMODIUM [Concomitant]
     Dates: start: 20031015, end: 20031029
  5. HEPARIN [Concomitant]
     Dates: start: 20031015

REACTIONS (3)
  - DEHYDRATION [None]
  - INTESTINAL OBSTRUCTION [None]
  - URINARY TRACT INFECTION [None]
